FAERS Safety Report 4750298-5 (Version None)
Quarter: 2005Q3

REPORT INFORMATION
  Report Type: 
  Country: None (occurrence: None)
  Receive Date: 20050823
  Receipt Date: 20050812
  Transmission Date: 20060218
  Serious: Yes (Other)
  Sender: FDA-Public Use
  Company Number: GB-BRISTOL-MYERS SQUIBB COMPANY-13074240

PATIENT
  Age: 34 Year
  Sex: Male

DRUGS (3)
  1. DIDANOSINE [Suspect]
     Indication: HIV INFECTION
     Dates: start: 19990101
  2. STAVUDINE [Suspect]
     Indication: HIV INFECTION
     Dates: start: 19990101
  3. VIRAMUNE [Suspect]
     Indication: HIV INFECTION
     Dates: start: 19990101

REACTIONS (1)
  - HEPATITIS B [None]
